FAERS Safety Report 7879853 (Version 2)
Quarter: 2012Q4

REPORT INFORMATION
  Report Type: 
  Country: AR (occurrence: UY)
  Receive Date: 20110331
  Receipt Date: 20120829
  Transmission Date: 20130627
  Serious: Yes (Other)
  Sender: FDA-Public Use
  Company Number: PHHY2011UY22682

PATIENT

DRUGS (1)
  1. LEPONEX [Suspect]
     Dosage: UNK

REACTIONS (1)
  - Leukaemia [Recovering/Resolving]
